FAERS Safety Report 10695622 (Version 2)
Quarter: 2015Q3

REPORT INFORMATION
  Report Type: Spontaneous
  Country: US (occurrence: US)
  Receive Date: 20150107
  Receipt Date: 20150915
  Transmission Date: 20151125
  Serious: No
  Sender: FDA-Public Use
  Company Number: US-LUNDBECK-DKLU1106436

PATIENT
  Age: 21 Year
  Sex: Male

DRUGS (4)
  1. LAMICTAL [Concomitant]
     Active Substance: LAMOTRIGINE
     Indication: EPILEPSY
     Route: 065
  2. BACLOFEN. [Concomitant]
     Active Substance: BACLOFEN
     Indication: CEREBRAL PALSY
     Route: 065
  3. ONFI [Suspect]
     Active Substance: CLOBAZAM
     Indication: EPILEPSY
     Route: 048
     Dates: start: 201411
  4. ONFI [Suspect]
     Active Substance: CLOBAZAM
     Route: 048

REACTIONS (5)
  - Retching [Unknown]
  - Decreased appetite [Unknown]
  - Nausea [Unknown]
  - Chills [Unknown]
  - Drooling [Unknown]

NARRATIVE: CASE EVENT DATE: 201411
